FAERS Safety Report 5041255-2 (Version None)
Quarter: 2006Q2

REPORT INFORMATION
  Report Type: 
  Country: None (occurrence: None)
  Receive Date: 20060626
  Receipt Date: 20060614
  Transmission Date: 20061013
  Serious: Yes (Hospitalization)
  Sender: FDA-Public Use
  Company Number: 200610240

PATIENT
  Sex: Female

DRUGS (2)
  1. STIMATE [Suspect]
     Dates: start: 20060601
  2. AMICAR [Concomitant]

REACTIONS (5)
  - DIZZINESS [None]
  - ELECTROLYTE IMBALANCE [None]
  - LETHARGY [None]
  - MUSCLE TIGHTNESS [None]
  - NO REACTION ON PREVIOUS EXPOSURE TO DRUG [None]
